FAERS Safety Report 14807614 (Version 2)
Quarter: 2018Q2

REPORT INFORMATION
  Report Type: Spontaneous
  Country: US (occurrence: US)
  Receive Date: 20180425
  Receipt Date: 20180514
  Transmission Date: 20180711
  Serious: No
  Sender: FDA-Public Use
  Company Number: US-GLAXOSMITHKLINE-US2018070962

PATIENT
  Age: 7 Year
  Sex: Male

DRUGS (3)
  1. ALBUTEROL INHALATION POWDER [Concomitant]
     Active Substance: ALBUTEROL
  2. FLOVENT DISKUS [Suspect]
     Active Substance: FLUTICASONE PROPIONATE
     Indication: ASTHMA
     Dosage: 2 PUFF(S), BID
  3. FLOVENT DISKUS [Suspect]
     Active Substance: FLUTICASONE PROPIONATE
     Dosage: UNK

REACTIONS (1)
  - Wrong technique in device usage process [Unknown]

NARRATIVE: CASE EVENT DATE: 201804
